APPROVED DRUG PRODUCT: ACYCLOVIR
Active Ingredient: ACYCLOVIR
Strength: 800MG
Dosage Form/Route: TABLET;ORAL
Application: A203834 | Product #002 | TE Code: AB
Applicant: HETERO LABS LTD UNIT V
Approved: Oct 29, 2013 | RLD: No | RS: Yes | Type: RX